FAERS Safety Report 18692170 (Version 5)
Quarter: 2021Q1

REPORT INFORMATION
  Report Type: Report from Study
  Country: US (occurrence: US)
  Receive Date: 20210102
  Receipt Date: 20210325
  Transmission Date: 20210419
  Serious: No
  Sender: FDA-Public Use
  Company Number: NVSC2020US344208

PATIENT
  Age: 52 Year
  Sex: Male

DRUGS (1)
  1. ENTRESTO [Suspect]
     Active Substance: SACUBITRIL\VALSARTAN
     Indication: PRODUCT USED FOR UNKNOWN INDICATION
     Dosage: UNK UNK, BID
     Route: 048
     Dates: start: 202012

REACTIONS (5)
  - Somnolence [Unknown]
  - Product dose omission issue [Unknown]
  - Stress [Unknown]
  - Illness [Unknown]
  - Vision blurred [Unknown]

NARRATIVE: CASE EVENT DATE: 20201227
